FAERS Safety Report 7147930-8 (Version None)
Quarter: 2010Q4

REPORT INFORMATION
  Report Type: 
  Country: None (occurrence: None)
  Receive Date: 20101206
  Receipt Date: 20101206
  Transmission Date: 20110411
  Serious: Yes (Hospitalization)
  Sender: FDA-Public Use
  Company Number: None

PATIENT
  Age: 24 Year
  Sex: Male
  Weight: 79.3795 kg

DRUGS (1)
  1. PROPOXYPHENE HCL AND ACETAMINOPHEN [Suspect]
     Indication: TOOTH EXTRACTION
     Dosage: 100-650 MG
     Dates: start: 20101006, end: 20101006

REACTIONS (4)
  - ANXIETY [None]
  - DISORIENTATION [None]
  - HYPERHIDROSIS [None]
  - PALPITATIONS [None]
